FAERS Safety Report 15225362 (Version 1)
Quarter: 2018Q3

REPORT INFORMATION
  Report Type: Spontaneous
  Country: TW (occurrence: TW)
  Receive Date: 20180801
  Receipt Date: 20180801
  Transmission Date: 20181010
  Serious: Yes (Other)
  Sender: FDA-Public Use
  Company Number: TW-ROCHE-2160764

PATIENT
  Sex: Male

DRUGS (12)
  1. XELODA [Concomitant]
     Active Substance: CAPECITABINE
     Route: 048
  2. EXEMESTANE. [Concomitant]
     Active Substance: EXEMESTANE
     Route: 065
  3. RIVOTRIL [Suspect]
     Active Substance: CLONAZEPAM
     Indication: PANIC DISORDER
     Route: 048
  4. VALDOXAN [Concomitant]
     Active Substance: AGOMELATINE
     Route: 065
  5. XANAX [Suspect]
     Active Substance: ALPRAZOLAM
     Indication: PANIC DISORDER
     Dosage: IMMEDIATE RELEASE
     Route: 048
  6. ETUMINE [Concomitant]
     Active Substance: CLOTHIAPINE
     Route: 065
  7. STILNOX [Concomitant]
     Active Substance: ZOLPIDEM TARTRATE
     Route: 065
  8. LENDORMIN [Concomitant]
     Active Substance: BROTIZOLAM
     Route: 065
  9. ZOLOFT [Suspect]
     Active Substance: SERTRALINE HYDROCHLORIDE
     Indication: PANIC DISORDER
     Dosage: EVERY MORNING
     Route: 048
  10. SEROQUEL [Concomitant]
     Active Substance: QUETIAPINE FUMARATE
     Route: 065
  11. ATIVAN [Concomitant]
     Active Substance: LORAZEPAM
     Route: 065
  12. MOREFINE [Concomitant]
     Route: 065

REACTIONS (3)
  - Suicidal ideation [Unknown]
  - Intentional product misuse [Unknown]
  - Drug ineffective [Unknown]

NARRATIVE: CASE EVENT DATE: 2018
